FAERS Safety Report 13694896 (Version 1)
Quarter: 2017Q2

REPORT INFORMATION
  Report Type: Spontaneous
  Country: US (occurrence: US)
  Receive Date: 20170627
  Receipt Date: 20170627
  Transmission Date: 20170830
  Serious: Yes (Death, Hospitalization)
  Sender: FDA-Public Use
  Company Number: US-VIFOR (INTERNATIONAL) INC.-VIT-2016-06728

PATIENT
  Age: 56 Year
  Sex: Male
  Weight: 74.91 kg

DRUGS (28)
  1. NOVOLOG [Concomitant]
     Active Substance: INSULIN ASPART
  2. NEOMYCIN-POLYMYXIN-HC [Concomitant]
  3. MELATONIN [Concomitant]
     Active Substance: MELATONIN
  4. DIALYVITE [Concomitant]
     Active Substance: ASCORBIC ACID\BIOTIN\CALCIUM PANTOTHENATE\COBALAMIN\FOLIC ACID\NIACINAMIDE\PYRIDOXINE HYDROCHLORIDE\RIBOFLAVIN\THIAMINE MONONITRATE
  5. DIPHENOXYLATE [Concomitant]
     Active Substance: DIPHENOXYLATE
  6. VELTASSA [Suspect]
     Active Substance: PATIROMER
     Indication: HYPERKALAEMIA
     Route: 048
     Dates: start: 20160526
  7. ZOFRAN [Concomitant]
     Active Substance: ONDANSETRON HYDROCHLORIDE
  8. SIMVASTATIN. [Concomitant]
     Active Substance: SIMVASTATIN
  9. KIONEX [Concomitant]
     Active Substance: SODIUM POLYSTYRENE SULFONATE
  10. ISOSORBIDE MONONITRATE. [Concomitant]
     Active Substance: ISOSORBIDE MONONITRATE
  11. FERROUS SULFATE. [Concomitant]
     Active Substance: FERROUS SULFATE
  12. CREON [Concomitant]
     Active Substance: PANCRELIPASE AMYLASE\PANCRELIPASE LIPASE\PANCRELIPASE PROTEASE
  13. CARVEDILOL. [Concomitant]
     Active Substance: CARVEDILOL
  14. OMEPRAZOLE. [Concomitant]
     Active Substance: OMEPRAZOLE
  15. ERGOCALCIFEROL. [Concomitant]
     Active Substance: ERGOCALCIFEROL
  16. ATROPINE. [Concomitant]
     Active Substance: ATROPINE
  17. ACETYLSALICYLIC ACID [Concomitant]
     Active Substance: ASPIRIN
  18. DICYCLOVERINE HYDROCHLORIDE [Concomitant]
     Active Substance: DICYCLOMINE HYDROCHLORIDE
  19. AMLODIPINE BESILATE [Concomitant]
     Active Substance: AMLODIPINE BESYLATE
  20. OXYCODONE HYDROCHLORIDE. [Concomitant]
     Active Substance: OXYCODONE HYDROCHLORIDE
  21. LEVSIN/SL [Concomitant]
  22. CLONIDINE HYDROCHLORIDE. [Concomitant]
     Active Substance: CLONIDINE HYDROCHLORIDE
  23. RENVELA [Concomitant]
     Active Substance: SEVELAMER CARBONATE
  24. SERTRALINE HYDROCHLORIDE. [Concomitant]
     Active Substance: SERTRALINE HYDROCHLORIDE
  25. LEVEMIR [Concomitant]
     Active Substance: INSULIN DETEMIR
  26. CEFPODOXIME PROXETIL. [Concomitant]
     Active Substance: CEFPODOXIME PROXETIL
  27. LOPERAMIDE [Concomitant]
     Active Substance: LOPERAMIDE
  28. CITRUCEL [Concomitant]
     Active Substance: METHYLCELLULOSE (4000 MPA.S)

REACTIONS (3)
  - Cardiac disorder [Fatal]
  - Aortic stenosis [Fatal]
  - Bradycardia [Unknown]

NARRATIVE: CASE EVENT DATE: 20161008
